FAERS Safety Report 14268729 (Version 1)
Quarter: 2017Q4

REPORT INFORMATION
  Report Type: Spontaneous
  Country: US (occurrence: US)
  Receive Date: 20171211
  Receipt Date: 20171211
  Transmission Date: 20180321
  Serious: No
  Sender: FDA-Public Use
  Company Number: US-JNJFOC-20171124844

PATIENT
  Sex: Female

DRUGS (4)
  1. FLONASE [Concomitant]
     Active Substance: FLUTICASONE PROPIONATE
     Indication: DERMATITIS ALLERGIC
     Route: 065
  2. ZYRTEC [Suspect]
     Active Substance: CETIRIZINE HYDROCHLORIDE
     Indication: DERMATITIS ALLERGIC
     Route: 065
  3. ZYRTEC [Suspect]
     Active Substance: CETIRIZINE HYDROCHLORIDE
     Indication: SEASONAL ALLERGY
     Route: 065
  4. FLONASE [Concomitant]
     Active Substance: FLUTICASONE PROPIONATE
     Indication: SEASONAL ALLERGY
     Route: 065

REACTIONS (2)
  - Product use in unapproved indication [Unknown]
  - Therapeutic response unexpected [Unknown]
